FAERS Safety Report 8420961-3 (Version None)
Quarter: 2012Q2

REPORT INFORMATION
  Report Type: 
  Country: None (occurrence: None)
  Receive Date: 20120608
  Receipt Date: 20120525
  Transmission Date: 20120825
  Serious: Yes (Hospitalization, Disabling)
  Sender: FDA-Public Use
  Company Number: NO-PFIZER INC-2012077865

PATIENT
  Sex: Female

DRUGS (1)
  1. NORVASC [Suspect]
     Dosage: UNK
     Route: 048
     Dates: start: 20120301, end: 20120301

REACTIONS (6)
  - DRY EYE [None]
  - RASH [None]
  - DEPRESSED MOOD [None]
  - OEDEMA [None]
  - PANIC ATTACK [None]
  - CHRONIC OBSTRUCTIVE PULMONARY DISEASE [None]
